FAERS Safety Report 9863857 (Version 3)
Quarter: 2014Q1

REPORT INFORMATION
  Report Type: Spontaneous
  Country: CA (occurrence: CA)
  Receive Date: 20140203
  Receipt Date: 20140310
  Transmission Date: 20141002
  Serious: Yes (Other)
  Sender: FDA-Public Use
  Company Number: CA-BAXTER-2013BAX038914

PATIENT
  Age: 69 Year
  Sex: Female

DRUGS (4)
  1. GAMMAGARD LIQUID -IMMUNE GLOBULIN INTRAVENOUS (HUMAN), [IGIV] 10% [Suspect]
     Indication: SELECTIVE IGG SUBCLASS DEFICIENCY
     Dosage: 3/4 OF 20 GRAM
     Route: 042
     Dates: start: 20130919, end: 20130919
  2. GAMMAGARD LIQUID -IMMUNE GLOBULIN INTRAVENOUS (HUMAN), [IGIV] 10% [Suspect]
     Route: 042
     Dates: start: 20130920, end: 20130920
  3. TYLENOL [Concomitant]
     Indication: PREMEDICATION
     Route: 065
     Dates: start: 20130919, end: 20130919
  4. TYLENOL [Concomitant]
     Route: 065
     Dates: start: 20130920, end: 20130920

REACTIONS (8)
  - Hypersensitivity [Recovered/Resolved]
  - Dyspnoea [Recovered/Resolved]
  - Blood pressure increased [Recovered/Resolved]
  - Tachycardia [Recovered/Resolved]
  - Heart rate increased [Recovered/Resolved]
  - Suffocation feeling [Recovered/Resolved]
  - Hyperhidrosis [Recovered/Resolved]
  - Tachypnoea [Recovered/Resolved]
